FAERS Safety Report 21573778 (Version 4)
Quarter: 2022Q4

REPORT INFORMATION
  Report Type: Spontaneous
  Country: US (occurrence: US)
  Receive Date: 20221109
  Receipt Date: 20221229
  Transmission Date: 20230113
  Serious: Yes (Other)
  Sender: FDA-Public Use
  Company Number: US-009507513-2211USA002790

PATIENT
  Sex: Male
  Weight: 63.7 kg

DRUGS (5)
  1. KEYTRUDA [Suspect]
     Active Substance: PEMBROLIZUMAB
     Dosage: 200 MILLIGRAM, EVERY 21 DAYS (Q3W)
     Route: 042
     Dates: start: 20220629, end: 20221024
  2. KEYTRUDA [Suspect]
     Active Substance: PEMBROLIZUMAB
     Dosage: 200 MG, Q14 DAYS
     Dates: start: 2022, end: 20221114
  3. FLUOROURACIL\LEUCOVORIN CALCIUM\OXALIPLATIN [Concomitant]
     Active Substance: FLUOROURACIL\LEUCOVORIN CALCIUM\OXALIPLATIN
     Indication: Oesophageal carcinoma
     Dosage: 90 MILLIGRAM
     Route: 042
     Dates: start: 20220629
  4. LEUCOVORIN [Concomitant]
     Active Substance: LEUCOVORIN
     Indication: Oesophageal carcinoma
     Dosage: 70 MILLIGRAM
     Route: 042
     Dates: start: 20220629, end: 20221024
  5. HERCEPTIN [Concomitant]
     Active Substance: TRASTUZUMAB
     Indication: Oesophageal carcinoma
     Dosage: 385 MILLIGRAM
     Route: 042
     Dates: start: 20220629, end: 20221114

REACTIONS (5)
  - Malignant neoplasm progression [Unknown]
  - Fatigue [Recovered/Resolved]
  - Fatigue [Recovered/Resolved]
  - Product dose omission issue [Unknown]
  - Product use issue [Unknown]

NARRATIVE: CASE EVENT DATE: 20220101
